FAERS Safety Report 23040691 (Version 2)
Quarter: 2023Q4

REPORT INFORMATION
  Report Type: Spontaneous
  Country: DK (occurrence: DK)
  Receive Date: 20231006
  Receipt Date: 20231014
  Transmission Date: 20240110
  Serious: Yes (Life-Threatening, Hospitalization, Other)
  Sender: FDA-Public Use
  Company Number: DK-BoehringerIngelheim-2023-BI-265379

PATIENT
  Sex: Male
  Weight: 112 kg

DRUGS (1)
  1. OFEV [Suspect]
     Active Substance: NINTEDANIB
     Indication: Pulmonary fibrosis
     Dates: start: 20230525, end: 20230530

REACTIONS (10)
  - Respiratory failure [Recovering/Resolving]
  - Vasculitis [Recovering/Resolving]
  - Joint swelling [Unknown]
  - Petechiae [Unknown]
  - Arthralgia [Unknown]
  - Pain in extremity [Unknown]
  - Arthralgia [Unknown]
  - Chromaturia [Unknown]
  - Enterobacter infection [Unknown]
  - Tremor [Unknown]

NARRATIVE: CASE EVENT DATE: 20230501
